FAERS Safety Report 4530795-8 (Version None)
Quarter: 2004Q4

REPORT INFORMATION
  Report Type: 
  Country: None (occurrence: None)
  Receive Date: 20041216
  Receipt Date: 20041203
  Transmission Date: 20050328
  Serious: Yes (Other)
  Sender: FDA-Public Use
  Company Number: 2004106432

PATIENT
  Age: 76 Year
  Sex: Male

DRUGS (3)
  1. PREDNISOLONE [Suspect]
     Indication: PNEUMONIA
     Dosage: 1 D, ORAL
     Route: 048
  2. CIPROFLOXACIN [Suspect]
     Indication: PNEUMONIA
     Dosage: 1 GRAM (1 GRAM, 1 IN 1 D), ORAL
     Route: 048
  3. BENZYLPENICILLIN (BENZYLPENICILLIN) [Concomitant]

REACTIONS (3)
  - DIFFICULTY IN WALKING [None]
  - PAIN [None]
  - TENDON RUPTURE [None]
